FAERS Safety Report 11802168 (Version 1)
Quarter: 2015Q4

REPORT INFORMATION
  Report Type: Spontaneous
  Country: CH (occurrence: CH)
  Receive Date: 20151204
  Receipt Date: 20151204
  Transmission Date: 20160305
  Serious: Yes (Hospitalization)
  Sender: FDA-Public Use
  Company Number: CH-TEVA-612628ISR

PATIENT
  Sex: Male

DRUGS (2)
  1. VOLTAREN [Concomitant]
     Active Substance: DICLOFENAC SODIUM
     Dosage: TAKES VOLTAREN OCCASIONALLY
     Route: 065
  2. ATORVASTATIN-MEPHA 40MG [Suspect]
     Active Substance: ATORVASTATIN
     Dosage: 20 MILLIGRAM DAILY; STRENGTH: 20 MG
     Route: 065
     Dates: start: 201502

REACTIONS (4)
  - Diarrhoea [Unknown]
  - Reaction to drug excipients [None]
  - Product formulation issue [Unknown]
  - Vomiting [Unknown]

NARRATIVE: CASE EVENT DATE: 2015
